FAERS Safety Report 9174209 (Version 2)
Quarter: 2013Q2

REPORT INFORMATION
  Report Type: Spontaneous
  Country: US (occurrence: US)
  Receive Date: 20130320
  Receipt Date: 20130426
  Transmission Date: 20140414
  Serious: Yes (Death, Other)
  Sender: FDA-Public Use
  Company Number: PHHY2013US025875

PATIENT
  Age: 48 Year
  Sex: Male

DRUGS (9)
  1. MIRTAZAPINE [Suspect]
     Indication: PROGRESSIVE MULTIFOCAL LEUKOENCEPHALOPATHY
     Dosage: 30 MG, DAILY
  2. MYCOPHENOLATE MOFETIL [Suspect]
     Indication: TRANSPLANT REJECTION
     Dosage: 750 MG, BID
  3. TACROLIMUS [Suspect]
     Indication: TRANSPLANT REJECTION
     Dosage: 0.5 MG, BID
  4. PREDNISOLONE [Suspect]
     Indication: TRANSPLANT REJECTION
     Dosage: 7.5 MG, DAILY
  5. PREDNISOLONE [Suspect]
     Dosage: 20 MG, DAILY
  6. CICLOSPORIN [Suspect]
     Indication: TRANSPLANT REJECTION
     Dosage: 275 MG, DAILY
  7. IMMUNOGLOBULINS [Suspect]
     Indication: PROGRESSIVE MULTIFOCAL LEUKOENCEPHALOPATHY
  8. RITUXIMAB [Suspect]
     Indication: TRANSPLANT REJECTION
     Dosage: 780 MG, UNK
  9. STEROIDS NOS [Suspect]
     Indication: TRANSPLANT REJECTION

REACTIONS (12)
  - Progressive multifocal leukoencephalopathy [Fatal]
  - JC virus infection [Fatal]
  - Abasia [Fatal]
  - Confusional state [Fatal]
  - Aphasia [Fatal]
  - Memory impairment [Fatal]
  - Tremor [Fatal]
  - Heart transplant rejection [Unknown]
  - Cardiac failure acute [Unknown]
  - Dyspnoea [Unknown]
  - Drug ineffective [Unknown]
  - Weight increased [Unknown]
